FAERS Safety Report 14928954 (Version 1)
Quarter: 2018Q2

REPORT INFORMATION
  Report Type: Spontaneous
  Country: US (occurrence: US)
  Receive Date: 20180504
  Receipt Date: 20180504
  Transmission Date: 20180711
  Serious: Yes (Life-Threatening, Hospitalization, Disabling)
  Sender: FDA-Public Use
  Company Number: None

PATIENT
  Age: 75 Year
  Sex: Male
  Weight: 114.75 kg

DRUGS (17)
  1. DULOXETINE HCL DR 30MG CAP [Suspect]
     Active Substance: DULOXETINE HYDROCHLORIDE
     Indication: PRODUCT USED FOR UNKNOWN INDICATION
     Dosage: ?          QUANTITY:1 CAPSULE(S);?
     Route: 048
     Dates: start: 20180313, end: 20180421
  2. ALPHA LIPOID ACID [Concomitant]
  3. TAMSULOSIN [Concomitant]
     Active Substance: TAMSULOSIN
  4. VITAMIN D3 [Concomitant]
     Active Substance: CHOLECALCIFEROL
  5. ZYRTEC [Concomitant]
     Active Substance: CETIRIZINE HYDROCHLORIDE
  6. ASPRIN [Concomitant]
     Active Substance: ASPIRIN
  7. LOSARTAN. [Concomitant]
     Active Substance: LOSARTAN
  8. VICTOZA [Concomitant]
     Active Substance: LIRAGLUTIDE
  9. GABAPENTIN. [Concomitant]
     Active Substance: GABAPENTIN
  10. LEVOTHYROXINE. [Concomitant]
     Active Substance: LEVOTHYROXINE
  11. ALLOPURINOL. [Concomitant]
     Active Substance: ALLOPURINOL
  12. PIOGLITAZONE. [Concomitant]
     Active Substance: PIOGLITAZONE
  13. MULTIVITAMIN/MINERALS [Concomitant]
  14. POTASSIUM CITRATE. [Concomitant]
     Active Substance: POTASSIUM CITRATE
  15. ATORVASTATIN [Concomitant]
     Active Substance: ATORVASTATIN
  16. GLIMEPIRIDE. [Concomitant]
     Active Substance: GLIMEPIRIDE
  17. IRON [Concomitant]
     Active Substance: IRON

REACTIONS (7)
  - Gait disturbance [None]
  - Blood glucose increased [None]
  - Tremor [None]
  - Fall [None]
  - Fluid imbalance [None]
  - Paraesthesia [None]
  - Haematochezia [None]

NARRATIVE: CASE EVENT DATE: 20180418
